FAERS Safety Report 6594075-1 (Version None)
Quarter: 2010Q1

REPORT INFORMATION
  Report Type: 
  Country: None (occurrence: None)
  Receive Date: 20100218
  Receipt Date: 20100218
  Transmission Date: 20100710
  Serious: Yes (Other)
  Sender: FDA-Public Use
  Company Number: None

PATIENT
  Age: 52 Year
  Sex: Male
  Weight: 103.4201 kg

DRUGS (2)
  1. PROTONIX [Suspect]
  2. LOTREL [Suspect]

REACTIONS (2)
  - DIPLOPIA [None]
  - FATIGUE [None]
